FAERS Safety Report 10210180 (Version 1)
Quarter: 2014Q2

REPORT INFORMATION
  Report Type: Spontaneous
  Country: US (occurrence: US)
  Receive Date: 20140602
  Receipt Date: 20140602
  Transmission Date: 20141212
  Serious: No
  Sender: FDA-Public Use
  Company Number: US-BAYER-2014-081535

PATIENT
  Sex: Male

DRUGS (2)
  1. ALEVE CAPLET [Suspect]
     Indication: ARTHRITIS
     Dosage: 1 DF, QD
     Route: 048
     Dates: start: 20140429, end: 20140525
  2. LISINOPRIL [Concomitant]
     Dosage: DF QD
     Route: 048

REACTIONS (2)
  - Dizziness [Recovered/Resolved]
  - Incorrect drug administration duration [None]
